FAERS Safety Report 14859381 (Version 1)
Quarter: 2018Q2

REPORT INFORMATION
  Report Type: Spontaneous
  Country: US (occurrence: US)
  Receive Date: 20180423
  Receipt Date: 20180423
  Transmission Date: 20180711
  Serious: Yes (Other)
  Sender: FDA-Public Use
  Company Number: None

PATIENT
  Age: 58 Year
  Sex: Female

DRUGS (10)
  1. PRALUENT [Suspect]
     Active Substance: ALIROCUMAB
     Indication: BLOOD CHOLESTEROL INCREASED
     Dosage: ?          QUANTITY:2 INJECTION(S);OTHER FREQUENCY:EVERY 2 WEEKS;?
     Route: 030
     Dates: start: 20171102, end: 20171117
  2. VITAMIN D [Concomitant]
     Active Substance: CHOLECALCIFEROL
  3. LOW DOSE ASPIRIN [Concomitant]
     Active Substance: ASPIRIN
  4. STENT [Concomitant]
  5. VITAMIN B/C COMPLEX [Concomitant]
  6. ATENOLOL. [Concomitant]
     Active Substance: ATENOLOL
  7. AMLODIPINE [Concomitant]
     Active Substance: AMLODIPINE BESYLATE
  8. MAGNESIUM OXIDE. [Concomitant]
     Active Substance: MAGNESIUM OXIDE
  9. MULTI [Concomitant]
  10. COQ [Concomitant]

REACTIONS (11)
  - Gait disturbance [None]
  - Arthropathy [None]
  - Musculoskeletal stiffness [None]
  - Joint range of motion decreased [None]
  - Drug dose omission [None]
  - Fatigue [None]
  - Cognitive disorder [None]
  - Myalgia [None]
  - Memory impairment [None]
  - Blepharospasm [None]
  - Drug ineffective [None]

NARRATIVE: CASE EVENT DATE: 20171121
